FAERS Safety Report 5896949-3 (Version None)
Quarter: 2008Q3

REPORT INFORMATION
  Report Type: 
  Country: None (occurrence: None)
  Receive Date: 20080924
  Receipt Date: 20071228
  Transmission Date: 20090109
  Serious: Yes (Hospitalization)
  Sender: FDA-Public Use
  Company Number: US-ASTRAZENECA-2008UW00077

PATIENT
  Sex: Female
  Weight: 131.1 kg

DRUGS (8)
  1. SEROQUEL [Suspect]
     Indication: BIPOLAR DISORDER
     Route: 048
     Dates: start: 20040101, end: 20070601
  2. METOPROLOL TARTRATE [Concomitant]
     Route: 048
  3. FUROSEMIDE [Concomitant]
     Route: 048
  4. PREVACID [Concomitant]
     Route: 048
  5. LORAZEPAM [Concomitant]
     Route: 048
  6. ASPIRIN [Concomitant]
     Route: 048
  7. CONCOR HAB [Concomitant]
  8. GLUCOSAMINE AND CHONDROITIN [Concomitant]

REACTIONS (1)
  - NEUROLEPTIC MALIGNANT SYNDROME [None]
